FAERS Safety Report 5746762-2 (Version None)
Quarter: 2008Q2

REPORT INFORMATION
  Report Type: 
  Country: None (occurrence: None)
  Receive Date: 20080522
  Receipt Date: 20080512
  Transmission Date: 20081010
  Serious: Yes (Other)
  Sender: FDA-Public Use
  Company Number: JP-PFIZER INC-2008028534

PATIENT
  Sex: Female

DRUGS (14)
  1. LIPITOR [Suspect]
     Indication: HYPERCHOLESTEROLAEMIA
     Dosage: DAILY DOSE:10MG-FREQ:DAILY
     Route: 048
  2. DORNER [Suspect]
     Dosage: DAILY DOSE:180MCG-FREQ:DAILY
     Route: 048
  3. ALUDROX ^WYETH^ [Suspect]
     Route: 048
  4. GLAKAY [Suspect]
     Dosage: DAILY DOSE:45GRAM-FREQ:DAILY
     Route: 048
  5. TAKEPRON [Concomitant]
     Dosage: DAILY DOSE:30MG-FREQ:DAILY
     Route: 048
  6. CYANOCOBALAMIN [Concomitant]
     Dosage: DAILY DOSE:1.5MG-FREQ:DAILY
     Route: 048
  7. NORVASC [Concomitant]
     Dosage: DAILY DOSE:5MG-FREQ:DAILY
     Route: 048
  8. MONTELUKAST SODIUM [Concomitant]
     Dosage: DAILY DOSE:10MG-FREQ:DAILY
     Route: 048
  9. JUVELA NICOTINATE [Concomitant]
     Dosage: DAILY DOSE:200MG-FREQ:DAILY
     Route: 048
  10. LENDORMIN [Concomitant]
     Dosage: DAILY DOSE:.25MG-FREQ:DAILY
     Route: 048
  11. FLUTIDE [Concomitant]
     Dosage: DAILY DOSE:400MG-FREQ:DAILY
     Route: 048
  12. ULCERLMIN [Concomitant]
     Dosage: DAILY DOSE:3GRAM-FREQ:DAILY
     Route: 048
     Dates: end: 20080316
  13. GASMOTIN [Concomitant]
     Dosage: DAILY DOSE:15MG-FREQ:DAILY
     Route: 048
  14. DEPAS [Concomitant]
     Route: 048

REACTIONS (1)
  - BLOOD POTASSIUM INCREASED [None]
